FAERS Safety Report 25315863 (Version 1)
Quarter: 2025Q2

REPORT INFORMATION
  Report Type: Spontaneous
  Country: SE (occurrence: SE)
  Receive Date: 20250515
  Receipt Date: 20250515
  Transmission Date: 20250716
  Serious: Yes (Hospitalization)
  Sender: ACCORD
  Company Number: None

PATIENT
  Age: 69 Year
  Sex: Female

DRUGS (2)
  1. METHOTREXATE [Suspect]
     Active Substance: METHOTREXATE
     Indication: Rheumatoid arthritis
     Dates: start: 20051031, end: 20250401
  2. HYDROXYCHLOROQUINE [Concomitant]
     Active Substance: HYDROXYCHLOROQUINE
     Dates: start: 20230525

REACTIONS (4)
  - Fall [Recovered/Resolved with Sequelae]
  - Stress fracture [Recovered/Resolved with Sequelae]
  - Osteopenia [Recovered/Resolved with Sequelae]
  - Contusion [Recovered/Resolved with Sequelae]

NARRATIVE: CASE EVENT DATE: 20250401
